FAERS Safety Report 7236943-3 (Version None)
Quarter: 2011Q1

REPORT INFORMATION
  Report Type: 
  Country: None (occurrence: None)
  Receive Date: 20110121
  Receipt Date: 20110111
  Transmission Date: 20110831
  Serious: Yes (Hospitalization, Disabling)
  Sender: FDA-Public Use
  Company Number: DE-BIOGENIDEC-2010BI034250

PATIENT
  Age: 53 Year
  Sex: Female
  Weight: 80 kg

DRUGS (8)
  1. ASPIRIN [Concomitant]
  2. LEVOTHYROXINE SODIUM [Concomitant]
  3. TILIDIN [Concomitant]
  4. TYSABRI [Suspect]
     Indication: MULTIPLE SCLEROSIS
     Route: 042
     Dates: start: 20061027, end: 20100430
  5. SIMVASTATIN [Concomitant]
  6. ANTIHYPERTENSIVE MEDICATION (NOS) [Concomitant]
  7. NOVODIGAL [Concomitant]
  8. REMIFEMIN [Concomitant]

REACTIONS (1)
  - CEREBROVASCULAR ACCIDENT [None]
